FAERS Safety Report 21290866 (Version 1)
Quarter: 2022Q3

REPORT INFORMATION
  Report Type: Spontaneous
  Country: FR (occurrence: FR)
  Receive Date: 20220903
  Receipt Date: 20220903
  Transmission Date: 20221027
  Serious: Yes (Hospitalization, Other)
  Sender: FDA-Public Use
  Company Number: FR-AFSSAPS-NT20222381

PATIENT
  Age: 70 Year
  Sex: Male
  Weight: 87.5 kg

DRUGS (2)
  1. ALLOPURINOL [Suspect]
     Active Substance: ALLOPURINOL
     Indication: Gout
     Dosage: 1 DOSAGE FORM
     Route: 048
     Dates: start: 20210909
  2. IBUPROFEN [Suspect]
     Active Substance: IBUPROFEN
     Indication: Gout
     Route: 048
     Dates: start: 20210909

REACTIONS (1)
  - Toxic epidermal necrolysis [Recovering/Resolving]

NARRATIVE: CASE EVENT DATE: 20211001
